FAERS Safety Report 11409446 (Version 1)
Quarter: 2015Q3

REPORT INFORMATION
  Report Type: Spontaneous
  Country: US (occurrence: None)
  Receive Date: 20150820
  Receipt Date: 20150820
  Transmission Date: 20151125
  Serious: Yes (Hospitalization)
  Sender: FDA-Public Use
  Company Number: None

PATIENT
  Age: 66 Year
  Sex: Female
  Weight: 64.86 kg

DRUGS (17)
  1. NEURONTIN [Concomitant]
     Active Substance: GABAPENTIN
  2. PLAVIX [Concomitant]
     Active Substance: CLOPIDOGREL BISULFATE
  3. HYDROXYCHLOROQUINE SULFATE 200 MG [Suspect]
     Active Substance: HYDROXYCHLOROQUINE SULFATE
     Indication: OSTEOARTHRITIS
     Dosage: 1 PIL
     Route: 048
     Dates: start: 20150512, end: 20150612
  4. CARGEL [Concomitant]
  5. LASIX [Concomitant]
     Active Substance: FUROSEMIDE
  6. ULTRAMAX NUTRIENT MVI [Concomitant]
  7. FISH OIL [Concomitant]
     Active Substance: FISH OIL
  8. HYDROXYCHLOROQUINE SULFATE 200 MG [Suspect]
     Active Substance: HYDROXYCHLOROQUINE SULFATE
     Indication: CUTANEOUS LUPUS ERYTHEMATOSUS
     Dosage: 1 PIL
     Route: 048
     Dates: start: 20150512, end: 20150612
  9. CELEXA [Concomitant]
     Active Substance: CITALOPRAM HYDROBROMIDE
  10. LISINOPRIL. [Concomitant]
     Active Substance: LISINOPRIL
  11. VISTARIL [Concomitant]
     Active Substance: HYDROXYZINE PAMOATE
  12. VIT. D3 [Concomitant]
  13. FOLATE [Concomitant]
     Active Substance: FOLATE SODIUM
  14. PROBIOTICS [Concomitant]
     Active Substance: PROBIOTICS NOS
  15. BENADRYL [Concomitant]
     Active Substance: DIPHENHYDRAMINE HYDROCHLORIDE
  16. SINGULAIR [Concomitant]
     Active Substance: MONTELUKAST SODIUM
  17. MAGNESIUM [Concomitant]
     Active Substance: MAGNESIUM

REACTIONS (5)
  - Drug ineffective [None]
  - Acute pulmonary oedema [None]
  - Bundle branch block left [None]
  - Left ventricular failure [None]
  - Myocardial infarction [None]

NARRATIVE: CASE EVENT DATE: 20150731
